FAERS Safety Report 18597202 (Version 2)
Quarter: 2021Q1

REPORT INFORMATION
  Report Type: Report from Study
  Country: RU (occurrence: RU)
  Receive Date: 20201209
  Receipt Date: 20210107
  Transmission Date: 20210419
  Serious: Yes (Other)
  Sender: FDA-Public Use
  Company Number: RU-INCYTE CORPORATION-2020IN012212

PATIENT

DRUGS (3)
  1. CYCLOPHOSPHAN [Concomitant]
     Active Substance: CYCLOPHOSPHAMIDE
     Indication: PROPHYLAXIS AGAINST GRAFT VERSUS HOST DISEASE
     Dosage: D+3, +4
     Route: 065
     Dates: start: 202008
  2. JAKAVI [Suspect]
     Active Substance: RUXOLITINIB
     Indication: PROPHYLAXIS AGAINST GRAFT VERSUS HOST DISEASE
     Dosage: 10 MG, QD (PER DAY FROM D?7 TO D?2 AND THEN STARTING FROM D+5 7.5?15 MG/DAY)
     Route: 048
     Dates: start: 202008, end: 20201109
  3. REVOLADE [Suspect]
     Active Substance: ELTROMBOPAG OLAMINE
     Indication: PRODUCT USED FOR UNKNOWN INDICATION
     Dosage: 100 MG, QD
     Route: 048
     Dates: start: 20201007, end: 20201110

REACTIONS (3)
  - Transplant dysfunction [Unknown]
  - Drug ineffective [Unknown]
  - Haemoglobin increased [Unknown]

NARRATIVE: CASE EVENT DATE: 20201109
